FAERS Safety Report 6905011-X (Version None)
Quarter: 2010Q3

REPORT INFORMATION
  Report Type: 
  Country: None (occurrence: None)
  Receive Date: 20100708
  Receipt Date: 20090810
  Transmission Date: 20110219
  Serious: Yes (Other)
  Sender: FDA-Public Use
  Company Number: 2007044711

PATIENT
  Age: 32 Year
  Sex: Female

DRUGS (8)
  1. CHANTIX [Suspect]
     Indication: SMOKING CESSATION THERAPY
     Dosage: 1X/DAY
     Dates: start: 20070501
  2. ALBUTEROL [Suspect]
     Indication: ASTHMA
     Dosage: INHALATION
     Route: 011
  3. KLONOPIN [Concomitant]
  4. TRAZODONE HCL [Concomitant]
  5. CYMBALTA [Concomitant]
  6. TRILEPTAL [Concomitant]
  7. PALIPERIDONE (PALIPERIDONE) [Concomitant]
  8. SPIRIVA [Concomitant]

REACTIONS (7)
  - ANXIETY [None]
  - HOSTILITY [None]
  - IRRITABILITY [None]
  - LOWER RESPIRATORY TRACT INFECTION [None]
  - MALAISE [None]
  - NERVOUSNESS [None]
  - SUICIDAL IDEATION [None]
